FAERS Safety Report 13973425 (Version 1)
Quarter: 2017Q3

REPORT INFORMATION
  Report Type: Spontaneous
  Country: US (occurrence: US)
  Receive Date: 20170915
  Receipt Date: 20170915
  Transmission Date: 20171128
  Serious: Yes (Other)
  Sender: FDA-Public Use
  Company Number: None

PATIENT
  Age: 71 Year
  Sex: Female
  Weight: 59.4 kg

DRUGS (18)
  1. LUTEIN [Concomitant]
     Active Substance: LUTEIN
  2. MAGNESIUM [Concomitant]
     Active Substance: MAGNESIUM
  3. FISH OIL [Concomitant]
     Active Substance: FISH OIL
  4. EYE VITAMIN [Concomitant]
  5. ZINC. [Concomitant]
     Active Substance: ZINC
  6. VITAMIN B12 [Concomitant]
     Active Substance: CYANOCOBALAMIN
  7. XIIDRA [Suspect]
     Active Substance: LIFITEGRAST
     Indication: CATARACT OPERATION COMPLICATION
     Dosage: ?          OTHER STRENGTH:DOES NOT SAY;QUANTITY:60 SINGLE VIALS;?
     Route: 047
     Dates: start: 20170815, end: 20170913
  8. METFORMIN [Concomitant]
     Active Substance: METFORMIN HYDROCHLORIDE
  9. CHELATEDCALCIUM [Concomitant]
  10. SYNTHROID [Concomitant]
     Active Substance: LEVOTHYROXINE SODIUM
  11. VAGIFEM [Concomitant]
     Active Substance: ESTRADIOL
  12. RESTASIS [Concomitant]
     Active Substance: CYCLOSPORINE
  13. ALAWAY [Concomitant]
     Active Substance: KETOTIFEN FUMARATE
  14. MULTIVITAMIN [Concomitant]
     Active Substance: VITAMINS
  15. KRILL OIL [Concomitant]
     Active Substance: DIETARY SUPPLEMENT
  16. POMEGRANITE [Concomitant]
  17. ARMOUR THYROID [Concomitant]
     Active Substance: THYROID, PORCINE
  18. XIIDRA [Suspect]
     Active Substance: LIFITEGRAST
     Indication: DRY EYE
     Dosage: ?          OTHER STRENGTH:DOES NOT SAY;QUANTITY:60 SINGLE VIALS;?
     Route: 047
     Dates: start: 20170815, end: 20170913

REACTIONS (6)
  - Lacrimation increased [None]
  - Blister [None]
  - Eye pain [None]
  - Skin irritation [None]
  - Eye irritation [None]
  - Corneal disorder [None]

NARRATIVE: CASE EVENT DATE: 20170913
